FAERS Safety Report 10902676 (Version 4)
Quarter: 2015Q4

REPORT INFORMATION
  Report Type: Spontaneous
  Country: US (occurrence: US)
  Receive Date: 20150310
  Receipt Date: 20151005
  Transmission Date: 20160304
  Serious: Yes (Hospitalization)
  Sender: FDA-Public Use
  Company Number: US-ACTELION-A-NJ2014-100196

PATIENT
  Age: 60 Year
  Sex: Female

DRUGS (4)
  1. POTASSIUM [Suspect]
     Active Substance: POTASSIUM
     Indication: PRODUCT USED FOR UNKNOWN INDICATION
     Dosage: UNK
     Route: 065
  2. XARELTO [Concomitant]
     Active Substance: RIVAROXABAN
  3. VELETRI [Suspect]
     Active Substance: EPOPROSTENOL
     Dosage: 30 NG/KG, PER MIN
     Route: 042
  4. VELETRI [Suspect]
     Active Substance: EPOPROSTENOL
     Indication: PULMONARY HYPERTENSION
     Dosage: 20 NG/KG, PER MIN
     Route: 042
     Dates: start: 20130328

REACTIONS (17)
  - Vomiting [Unknown]
  - Paracentesis [Unknown]
  - Abdominal distension [Recovering/Resolving]
  - Gait disturbance [Unknown]
  - Sinus disorder [Unknown]
  - Fluid overload [Recovering/Resolving]
  - Oedema peripheral [Recovering/Resolving]
  - Oedema [Unknown]
  - Fall [Unknown]
  - Headache [Unknown]
  - Nausea [Unknown]
  - Pain [Unknown]
  - Muscle disorder [Unknown]
  - Ascites [Unknown]
  - Localised oedema [Recovering/Resolving]
  - Dyspnoea [Unknown]
  - Abdominal pain upper [Unknown]

NARRATIVE: CASE EVENT DATE: 20140603
